FAERS Safety Report 22947661 (Version 2)
Quarter: 2024Q2

REPORT INFORMATION
  Report Type: Spontaneous
  Country: US (occurrence: US)
  Receive Date: 20230915
  Receipt Date: 20240405
  Transmission Date: 20240715
  Serious: Yes (Other)
  Sender: FDA-Public Use
  Company Number: US-JNJFOC-20230924886

PATIENT
  Sex: Female

DRUGS (7)
  1. TYLENOL [Suspect]
     Active Substance: ACETAMINOPHEN
     Indication: Migraine
     Dosage: PRN
     Route: 048
  2. CAFFEINE [Suspect]
     Active Substance: CAFFEINE
     Indication: Migraine
     Dosage: PRN
     Route: 048
  3. ADVIL [Suspect]
     Active Substance: IBUPROFEN
     Indication: Migraine
     Route: 048
  4. ASPIRIN [Concomitant]
     Active Substance: ASPIRIN
     Indication: Pre-eclampsia
     Route: 048
     Dates: start: 20230515
  5. REGLAN [Concomitant]
     Active Substance: METOCLOPRAMIDE HYDROCHLORIDE
     Indication: Nausea
     Route: 048
     Dates: start: 20230515
  6. PEPCID [Concomitant]
     Active Substance: FAMOTIDINE
     Indication: Dyspepsia
     Route: 048
     Dates: start: 20230831
  7. PRENATAL VITAMINS [ASCORBIC ACID;CALCIUM PANTOTHENATE;CYANOCOBALAMIN;E [Concomitant]
     Indication: Pre-eclampsia
     Route: 065

REACTIONS (2)
  - Placenta praevia [Recovered/Resolved]
  - Exposure during pregnancy [Unknown]

NARRATIVE: CASE EVENT DATE: 20230707
